FAERS Safety Report 19651737 (Version 1)
Quarter: 2021Q3

REPORT INFORMATION
  Report Type: Spontaneous
  Country: US (occurrence: US)
  Receive Date: 20210803
  Receipt Date: 20210803
  Transmission Date: 20211014
  Serious: No
  Sender: FDA-Public Use
  Company Number: None

PATIENT
  Sex: Female
  Weight: 80.55 kg

DRUGS (8)
  1. LASIX [Concomitant]
     Active Substance: FUROSEMIDE
  2. CLARITIN [Concomitant]
     Active Substance: LORATADINE
  3. IBRANCE [Suspect]
     Active Substance: PALBOCICLIB
     Indication: BREAST CANCER FEMALE
     Route: 048
  4. COD LIVER OIL [Concomitant]
     Active Substance: COD LIVER OIL
  5. EXEMESTANE. [Concomitant]
     Active Substance: EXEMESTANE
  6. BRIMONIDINE TARTRATE. [Concomitant]
     Active Substance: BRIMONIDINE TARTRATE
  7. PREDNISOLONE. [Concomitant]
     Active Substance: PREDNISOLONE
  8. LEVOTHYROXINE. [Concomitant]
     Active Substance: LEVOTHYROXINE

REACTIONS (2)
  - Fatigue [None]
  - Dyspnoea [None]
